FAERS Safety Report 12179483 (Version 1)
Quarter: 2016Q1

REPORT INFORMATION
  Report Type: Spontaneous
  Country: US (occurrence: None)
  Receive Date: 20160314
  Receipt Date: 20160314
  Transmission Date: 20160526
  Serious: Yes (Hospitalization, Other)
  Sender: FDA-Public Use
  Company Number: None

PATIENT
  Age: 82 Year
  Sex: Female

DRUGS (1)
  1. HUMIRA [Suspect]
     Active Substance: ADALIMUMAB
     Indication: CROHN^S DISEASE
     Dosage: INJECTABLE EVERY OTHER WEEK
     Route: 058
     Dates: start: 20160202

REACTIONS (2)
  - Drug dose omission [None]
  - Chest pain [None]

NARRATIVE: CASE EVENT DATE: 20160226
